FAERS Safety Report 6256057-9 (Version None)
Quarter: 2009Q2

REPORT INFORMATION
  Report Type: 
  Country: None (occurrence: None)
  Receive Date: 20090630
  Receipt Date: 20090630
  Transmission Date: 20091009
  Serious: Yes (Hospitalization)
  Sender: FDA-Public Use
  Company Number: None

PATIENT
  Age: 48 Year
  Sex: Male
  Weight: 108.8633 kg

DRUGS (1)
  1. NIASPAN [Suspect]

REACTIONS (1)
  - ATRIAL FIBRILLATION [None]
